FAERS Safety Report 10560407 (Version 3)
Quarter: 2015Q1

REPORT INFORMATION
  Report Type: Spontaneous
  Country: US (occurrence: US)
  Receive Date: 20141103
  Receipt Date: 20150224
  Transmission Date: 20150720
  Serious: Yes (Other)
  Sender: FDA-Public Use
  Company Number: US-SA-2014SA146779

PATIENT
  Age: 76 Year
  Sex: Male
  Weight: 82.1 kg

DRUGS (29)
  1. TYVASO [Suspect]
     Active Substance: TREPROSTINIL
     Indication: PULMONARY HYPERTENSION
     Dosage: DOSE: 18-54 MICRO GRAMS
     Route: 055
     Dates: start: 20140718
  2. TYVASO [Suspect]
     Active Substance: TREPROSTINIL
     Indication: PULMONARY ARTERIAL HYPERTENSION
     Dosage: DOSE: 18-54 MICRO GRAMS
     Route: 055
     Dates: start: 20140718
  3. TYVASO [Suspect]
     Active Substance: TREPROSTINIL
     Indication: PULMONARY ARTERIAL HYPERTENSION
     Dosage: DOSE-9 INHALATIONS
     Route: 055
  4. TYVASO [Suspect]
     Active Substance: TREPROSTINIL
     Indication: PULMONARY ARTERIAL HYPERTENSION
     Route: 055
     Dates: end: 20141121
  5. TYVASO [Suspect]
     Active Substance: TREPROSTINIL
     Indication: PULMONARY HYPERTENSION
     Dosage: DOSE-3 BREATHS PER CYCLE
     Route: 055
  6. TYVASO [Suspect]
     Active Substance: TREPROSTINIL
     Indication: PULMONARY HYPERTENSION
     Dosage: DOSE-9 INHALATIONS
     Route: 055
  7. LETAIRIS [Suspect]
     Active Substance: AMBRISENTAN
     Indication: PULMONARY HYPERTENSION
     Route: 065
     Dates: start: 20130524
  8. DOXAZOSIN [Suspect]
     Active Substance: DOXAZOSIN\DOXAZOSIN MESYLATE
     Indication: BENIGN PROSTATIC HYPERPLASIA
     Route: 065
     Dates: end: 201408
  9. DOXAZOSIN [Suspect]
     Active Substance: DOXAZOSIN\DOXAZOSIN MESYLATE
     Indication: BENIGN PROSTATIC HYPERPLASIA
     Route: 065
     Dates: start: 20140820
  10. TYVASO [Suspect]
     Active Substance: TREPROSTINIL
     Indication: PULMONARY HYPERTENSION
     Dosage: DOSE:7
     Route: 055
     Dates: end: 201408
  11. TYVASO [Suspect]
     Active Substance: TREPROSTINIL
     Indication: PULMONARY ARTERIAL HYPERTENSION
     Dosage: DOSE-7 BREATHS
     Route: 055
     Dates: start: 20140901, end: 20140903
  12. TYVASO [Suspect]
     Active Substance: TREPROSTINIL
     Indication: PULMONARY ARTERIAL HYPERTENSION
     Dosage: DOSE-3 BREATHS PER CYCLE
     Route: 055
  13. LASIX [Suspect]
     Active Substance: FUROSEMIDE
     Route: 065
     Dates: start: 20140717, end: 201408
  14. TYVASO [Suspect]
     Active Substance: TREPROSTINIL
     Indication: PULMONARY HYPERTENSION
     Dosage: DOSE: 18-54 MCG
     Route: 055
     Dates: start: 20140717
  15. TYVASO [Suspect]
     Active Substance: TREPROSTINIL
     Indication: PULMONARY ARTERIAL HYPERTENSION
     Dosage: DOSE-9
     Route: 055
     Dates: start: 201408, end: 20140831
  16. TYVASO [Suspect]
     Active Substance: TREPROSTINIL
     Indication: PULMONARY HYPERTENSION
     Dosage: DOSE-9
     Route: 055
     Dates: start: 201408, end: 20140831
  17. TYVASO [Suspect]
     Active Substance: TREPROSTINIL
     Indication: PULMONARY ARTERIAL HYPERTENSION
     Dosage: DOSE:7
     Route: 055
     Dates: end: 201408
  18. TYVASO [Suspect]
     Active Substance: TREPROSTINIL
     Indication: PULMONARY ARTERIAL HYPERTENSION
     Dosage: DOSE: 18-54 MICRO GRAMS
     Route: 055
     Dates: start: 20140718
  19. TYVASO [Suspect]
     Active Substance: TREPROSTINIL
     Indication: PULMONARY ARTERIAL HYPERTENSION
     Dosage: DOSE: 18-54 MICRO GRAMS
     Route: 055
     Dates: start: 20140718
  20. TYVASO [Suspect]
     Active Substance: TREPROSTINIL
     Indication: PULMONARY HYPERTENSION
     Dosage: DOSE: 18-54 MICRO GRAMS
     Route: 055
     Dates: start: 20140718
  21. LASIX [Suspect]
     Active Substance: FUROSEMIDE
     Route: 065
  22. TYVASO [Suspect]
     Active Substance: TREPROSTINIL
     Indication: PULMONARY HYPERTENSION
     Dosage: DOSE: 18-54 MICRO GRAMS
     Route: 055
     Dates: start: 20140718
  23. TYVASO [Suspect]
     Active Substance: TREPROSTINIL
     Indication: PULMONARY HYPERTENSION
     Dosage: DOSE-7 BREATHS
     Route: 055
     Dates: start: 20140901, end: 20140903
  24. IMDUR [Suspect]
     Active Substance: ISOSORBIDE MONONITRATE
     Route: 065
     Dates: start: 201408, end: 201408
  25. ADCIRCA [Concomitant]
     Active Substance: TADALAFIL
  26. TYVASO [Suspect]
     Active Substance: TREPROSTINIL
     Indication: PULMONARY ARTERIAL HYPERTENSION
     Dosage: DOSE: 18-54 MCG
     Route: 055
     Dates: start: 20140717
  27. TYVASO [Suspect]
     Active Substance: TREPROSTINIL
     Indication: PULMONARY ARTERIAL HYPERTENSION
     Dosage: DOSE: 18-54 MICRO GRAMS
     Route: 055
     Dates: start: 20140717, end: 20140717
  28. TYVASO [Suspect]
     Active Substance: TREPROSTINIL
     Indication: PULMONARY HYPERTENSION
     Route: 055
     Dates: end: 20141121
  29. TYVASO [Suspect]
     Active Substance: TREPROSTINIL
     Indication: PULMONARY HYPERTENSION
     Dosage: DOSE: 18-54 MICRO GRAMS
     Route: 055
     Dates: start: 20140717, end: 20140717

REACTIONS (4)
  - Dizziness [Not Recovered/Not Resolved]
  - Feeling abnormal [Recovered/Resolved]
  - Presyncope [Unknown]
  - Hypotension [Recovered/Resolved]

NARRATIVE: CASE EVENT DATE: 2014
